FAERS Safety Report 5464675-0 (Version None)
Quarter: 2007Q3

REPORT INFORMATION
  Report Type: 
  Country: None (occurrence: None)
  Receive Date: 20070921
  Receipt Date: 20070917
  Transmission Date: 20080115
  Serious: Yes (Hospitalization)
  Sender: FDA-Public Use
  Company Number: US-PFIZER INC-2004115871

PATIENT
  Sex: Male
  Weight: 90.3 kg

DRUGS (10)
  1. ATORVASTATIN CALCIUM [Suspect]
     Indication: CORONARY ARTERY DISEASE
     Dosage: DAILY DOSE:40MG
     Route: 048
     Dates: start: 20040909, end: 20041101
  2. ATORVASTATIN CALCIUM [Suspect]
     Dosage: DAILY DOSE:40MG
     Route: 048
     Dates: start: 20041102, end: 20041220
  3. ALL OTHER THERAPEUTIC PRODUCTS [Concomitant]
  4. ASPIRIN [Concomitant]
     Indication: CARDIOVASCULAR EVENT PROPHYLAXIS
     Route: 048
  5. GLUCOPHAGE [Concomitant]
     Indication: DIABETES MELLITUS
     Route: 048
  6. AMARYL [Concomitant]
     Indication: DIABETES MELLITUS
     Route: 048
  7. ACCUPRIL [Concomitant]
     Indication: HYPERTENSION
     Route: 048
  8. NOVOLOG [Concomitant]
     Indication: DIABETES MELLITUS
     Dosage: TEXT:18 UNITS AM/14 UNITS PM
     Route: 058
  9. POLYTRIM [Concomitant]
     Route: 047
  10. OPHTHALMOLOGICALS [Concomitant]
     Route: 047

REACTIONS (2)
  - PERICARDIAL EFFUSION [None]
  - PLEURAL EFFUSION [None]
